FAERS Safety Report 17715824 (Version 1)
Quarter: 2020Q2

REPORT INFORMATION
  Report Type: Spontaneous
  Country: US (occurrence: US)
  Receive Date: 20200427
  Receipt Date: 20200427
  Transmission Date: 20200714
  Serious: No
  Sender: FDA-Public Use
  Company Number: US-AMGEN-USASP2020068445

PATIENT
  Sex: Female

DRUGS (3)
  1. HERCEPTIN [Concomitant]
     Active Substance: TRASTUZUMAB
     Dosage: UNK
  2. NEULASTA [Suspect]
     Active Substance: PEGFILGRASTIM
     Indication: NEUTROPENIA
     Dosage: UNK
     Route: 065
  3. PAXOL [PACLITAXEL] [Concomitant]
     Dosage: UNK

REACTIONS (5)
  - Taste disorder [Recovered/Resolved]
  - Fatigue [Recovered/Resolved]
  - Pain [Recovered/Resolved]
  - Feeling abnormal [Recovered/Resolved]
  - Pyrexia [Recovered/Resolved]
